FAERS Safety Report 25002320 (Version 1)
Quarter: 2025Q1

REPORT INFORMATION
  Report Type: Spontaneous
  Country: US (occurrence: US)
  Receive Date: 20250224
  Receipt Date: 20250224
  Transmission Date: 20250408
  Serious: No
  Sender: Kenvue
  Company Number: US-KENVUE-20250108847

PATIENT
  Age: 77 Year
  Sex: Female

DRUGS (1)
  1. MENS ROGAINE EXTRA STRENGTH [Suspect]
     Active Substance: MINOXIDIL
     Indication: Alopecia
     Dosage: 1 MILLILITER EQUIVALENT TO 5 DROPS, TWICE A DAY
     Route: 061
     Dates: start: 20250118, end: 202501

REACTIONS (5)
  - Application site rash [Recovering/Resolving]
  - Rash [Recovering/Resolving]
  - Application site pruritus [Recovering/Resolving]
  - Pruritus [Recovering/Resolving]
  - Off label use [Unknown]

NARRATIVE: CASE EVENT DATE: 20250118
